FAERS Safety Report 4821706-6 (Version None)
Quarter: 2005Q4

REPORT INFORMATION
  Report Type: 
  Country: None (occurrence: None)
  Receive Date: 20051104
  Receipt Date: 20051104
  Transmission Date: 20060501
  Serious: Yes (Hospitalization)
  Sender: FDA-Public Use
  Company Number: None

PATIENT
  Sex: Male

DRUGS (2)
  1. VANCOMYCIN [Suspect]
     Dosage: 2 GRAMS IV
     Route: 042
  2. GENTAMICIN [Suspect]
     Dosage: 80 MG IV
     Route: 042

REACTIONS (2)
  - INFUSION RELATED REACTION [None]
  - URTICARIA [None]
